FAERS Safety Report 8033902-8 (Version None)
Quarter: 2012Q1

REPORT INFORMATION
  Report Type: 
  Country: None (occurrence: None)
  Receive Date: 20120110
  Receipt Date: 20120102
  Transmission Date: 20120608
  Serious: Yes (Other)
  Sender: FDA-Public Use
  Company Number: DE-ELI_LILLY_AND_COMPANY-DE201112001317

PATIENT
  Age: 32 Year
  Sex: Female

DRUGS (4)
  1. CYMBALTA [Suspect]
     Dosage: 600 MG, SINGLE
     Route: 048
     Dates: start: 20111202, end: 20111202
  2. ALCOHOL [Concomitant]
  3. CYMBALTA [Suspect]
     Dosage: 30 MG, UNKNOWN
     Route: 048
  4. PROMETHAZINE HCL [Concomitant]
     Dosage: 400 MG, UNK
     Dates: start: 20111202, end: 20111202

REACTIONS (9)
  - INTENTIONAL OVERDOSE [None]
  - VOMITING [None]
  - BLOOD ALCOHOL INCREASED [None]
  - ELECTROCARDIOGRAM QT PROLONGED [None]
  - SOMNOLENCE [None]
  - NAUSEA [None]
  - ADVERSE EVENT [None]
  - SUICIDE ATTEMPT [None]
  - AGITATION [None]
